FAERS Safety Report 23736331 (Version 1)
Quarter: 2024Q2

REPORT INFORMATION
  Report Type: Spontaneous
  Country: US (occurrence: US)
  Receive Date: 20240412
  Receipt Date: 20240412
  Transmission Date: 20240716
  Serious: No
  Sender: FDA-Public Use
  Company Number: US-SA-SAC20240409000886

PATIENT
  Sex: Male
  Weight: 89.44 kg

DRUGS (5)
  1. DUPIXENT [Suspect]
     Active Substance: DUPILUMAB
     Indication: Dermatitis atopic
     Dosage: 2 DF, 1X
  2. DUPIXENT [Suspect]
     Active Substance: DUPILUMAB
     Dosage: 1 DF, QOW
  3. TYLENOL [Concomitant]
     Active Substance: ACETAMINOPHEN
  4. SYSTANE BALANCE [Concomitant]
     Active Substance: PROPYLENE GLYCOL
  5. KENALOG [Concomitant]
     Active Substance: TRIAMCINOLONE ACETONIDE

REACTIONS (1)
  - Acne [Unknown]
